FAERS Safety Report 4947517-9 (Version None)
Quarter: 2006Q1

REPORT INFORMATION
  Report Type: 
  Country: None (occurrence: None)
  Receive Date: 20060313
  Receipt Date: 20060302
  Transmission Date: 20060701
  Serious: Yes (Other)
  Sender: FDA-Public Use
  Company Number: 2006031240

PATIENT
  Age: 52 Year
  Sex: Female
  Weight: 67.1324 kg

DRUGS (6)
  1. NORVASC [Suspect]
     Indication: HYPERTENSION
     Dosage: 5 MG (5 MG, 1 IN 24 HR) ORAL
     Route: 048
     Dates: start: 20050101
  2. UNITHROID (LEVOTHYROXINE SODIUM) [Concomitant]
  3. MAXZIDE [Concomitant]
  4. KLONOPIN [Concomitant]
  5. PAXIL [Concomitant]
  6. GABAPENTIN [Concomitant]

REACTIONS (5)
  - CONDITION AGGRAVATED [None]
  - DRUG INEFFECTIVE [None]
  - MUSCLE SPASMS [None]
  - NASOPHARYNGITIS [None]
  - REFLEXES ABNORMAL [None]
